FAERS Safety Report 19660519 (Version 1)
Quarter: 2021Q3

REPORT INFORMATION
  Report Type: Spontaneous
  Country: US (occurrence: US)
  Receive Date: 20210805
  Receipt Date: 20210805
  Transmission Date: 20211014
  Serious: No
  Sender: FDA-Public Use
  Company Number: US-ORGANON-O2107USA002371

PATIENT
  Sex: Male

DRUGS (1)
  1. ASMANEX HFA [Suspect]
     Active Substance: MOMETASONE FUROATE
     Indication: DYSPNOEA
     Dosage: 2 PUFFS TWICE DAILY

REACTIONS (5)
  - Dyspnoea [Unknown]
  - Cough [Unknown]
  - Panic reaction [Unknown]
  - Product use in unapproved indication [Unknown]
  - Product prescribing issue [Unknown]
